FAERS Safety Report 5575401-9 (Version None)
Quarter: 2007Q4

REPORT INFORMATION
  Report Type: 
  Country: None (occurrence: None)
  Receive Date: 20071227
  Receipt Date: 20071218
  Transmission Date: 20080405
  Serious: Yes (Hospitalization)
  Sender: FDA-Public Use
  Company Number: US-BOEHRINGER INGELHEIM PHARMACEUTICALS, INC.-2007-DE-07450GD

PATIENT

DRUGS (2)
  1. RANITIDINE HCL [Suspect]
     Indication: GASTROOESOPHAGEAL REFLUX DISEASE
  2. ADVAIR DISKUS 100/50 [Suspect]
     Indication: ASTHMA
     Dosage: 100 MCG FLUTICASONE/50 MCG SALMETEROL AS ONE SINGLE PUFF TWO TIMES PER DAY
     Route: 055

REACTIONS (1)
  - ASTHMA [None]
